FAERS Safety Report 19377954 (Version 1)
Quarter: 2021Q2

REPORT INFORMATION
  Report Type: Spontaneous
  Country: DE (occurrence: DE)
  Receive Date: 20210605
  Receipt Date: 20210605
  Transmission Date: 20210717
  Serious: Yes (Hospitalization)
  Sender: FDA-Public Use
  Company Number: DE-DRREDDYS-GER/GER/21/0136276

PATIENT
  Age: 72 Year
  Sex: Female
  Weight: 54.4 kg

DRUGS (1)
  1. IBUPROFEN. [Suspect]
     Active Substance: IBUPROFEN
     Indication: PRODUCT USED FOR UNKNOWN INDICATION
     Dosage: 600 MG, BIS ZU 6STUCK, TABLETTEN

REACTIONS (5)
  - Back pain [Unknown]
  - Paraesthesia [Unknown]
  - Breast pain [Unknown]
  - Product prescribing error [Unknown]
  - Acute kidney injury [Unknown]
